FAERS Safety Report 5427692-2 (Version None)
Quarter: 2007Q3

REPORT INFORMATION
  Report Type: 
  Country: None (occurrence: None)
  Receive Date: 20070823
  Receipt Date: 20070724
  Transmission Date: 20080115
  Serious: Yes (Hospitalization)
  Sender: FDA-Public Use
  Company Number: 070703852

PATIENT
  Age: 27 Year
  Weight: 63.5036 kg

DRUGS (1)
  1. MUCINEX DM [Suspect]
     Indication: EUPHORIC MOOD
     Dosage: 35TABL, ONCE, ORAL
     Route: 048
     Dates: start: 20070724, end: 20070724

REACTIONS (2)
  - HALLUCINATION [None]
  - HOMICIDAL IDEATION [None]
